FAERS Safety Report 18282346 (Version 1)
Quarter: 2020Q3

REPORT INFORMATION
  Report Type: Spontaneous
  Country: US (occurrence: US)
  Receive Date: 20200918
  Receipt Date: 20200918
  Transmission Date: 20201103
  Serious: No
  Sender: FDA-Public Use
  Company Number: None

PATIENT
  Age: 54 Year
  Sex: Female
  Weight: 57.6 kg

DRUGS (6)
  1. NP THYROID [Suspect]
     Active Substance: LEVOTHYROXINE\LIOTHYRONINE
     Indication: HYPOTHYROIDISM
     Dosage: ?          OTHER ROUTE:MOUTH?
     Dates: start: 20190601, end: 20190817
  2. TIROSINT [Concomitant]
     Active Substance: LEVOTHYROXINE SODIUM
  3. NP THYROID [Suspect]
     Active Substance: LEVOTHYROXINE\LIOTHYRONINE
     Indication: HYPOPITUITARISM
     Dosage: ?          OTHER ROUTE:MOUTH?
     Dates: start: 20190601, end: 20190817
  4. DILTIAZEM. [Concomitant]
     Active Substance: DILTIAZEM
  5. HUMATROPE [Concomitant]
     Active Substance: SOMATROPIN
  6. CORTEF [Concomitant]
     Active Substance: HYDROCORTISONE

REACTIONS (3)
  - Feeling abnormal [None]
  - Cortisol decreased [None]
  - Recalled product [None]

NARRATIVE: CASE EVENT DATE: 20200801
